FAERS Safety Report 8904454 (Version 3)
Quarter: 2012Q4

REPORT INFORMATION
  Report Type: Report from Study
  Country: AR (occurrence: AR)
  Receive Date: 20121112
  Receipt Date: 20121221
  Transmission Date: 20130627
  Serious: Yes (Hospitalization, Other)
  Sender: FDA-Public Use
  Company Number: AR-ABBOTT-12P-007-0999299-00

PATIENT
  Age: 68 Year
  Sex: Female

DRUGS (3)
  1. HUMIRA [Suspect]
     Indication: RHEUMATOID ARTHRITIS
     Route: 058
     Dates: start: 20101125, end: 20121009
  2. HUMIRA [Suspect]
     Dates: start: 20121129
  3. NEBULIZER [Concomitant]

REACTIONS (5)
  - Joint dislocation [Recovered/Resolved]
  - Bronchial disorder [Recovering/Resolving]
  - Pyrexia [Recovered/Resolved]
  - Post procedural infection [Recovered/Resolved]
  - Pain [Recovering/Resolving]
